FAERS Safety Report 10907368 (Version 2)
Quarter: 2015Q1

REPORT INFORMATION
  Report Type: Spontaneous
  Country: JP (occurrence: JP)
  Receive Date: 20150312
  Receipt Date: 20150327
  Transmission Date: 20150721
  Serious: Yes (Other)
  Sender: FDA-Public Use
  Company Number: JP-PFIZER INC-2015085328

PATIENT
  Age: 69 Year
  Sex: Male
  Weight: 64.8 kg

DRUGS (11)
  1. CLEXANE [Concomitant]
     Active Substance: ENOXAPARIN SODIUM
     Dosage: 2000 U, 2X/DAY
     Dates: start: 20150118, end: 20150121
  2. FLUMARIN [Concomitant]
     Active Substance: FLOMOXEF SODIUM
     Dosage: 1 G, 2X/DAY
     Dates: start: 20150114, end: 20150116
  3. ATARAX-P [Suspect]
     Active Substance: HYDROXYZINE HYDROCHLORIDE
     Indication: NEUROSIS
     Dosage: 25 MG, 1X/DAY
     Route: 041
     Dates: start: 20150115, end: 20150117
  4. ATARAX-P [Suspect]
     Active Substance: HYDROXYZINE HYDROCHLORIDE
     Indication: ANXIETY
  5. ONOACT [Concomitant]
     Active Substance: LANDIOLOL HYDROCHLORIDE
     Dosage: 50 MG, 3X/DAY
     Dates: start: 20150118, end: 20150121
  6. PREPENON [Suspect]
     Active Substance: MORPHINE HYDROCHLORIDE
     Indication: PROCEDURAL PAIN
     Dosage: 0.1 ML/HR X 24 HOURS
     Route: 058
     Dates: start: 20150114, end: 20150119
  7. ZOSYN [Concomitant]
     Active Substance: PIPERACILLIN SODIUM\TAZOBACTAM SODIUM
     Dosage: 4.5 G, 3X/DAY
     Dates: start: 20150117, end: 20150121
  8. SOLU-MEDROL [Suspect]
     Active Substance: METHYLPREDNISOLONE SODIUM SUCCINATE
     Indication: SURGERY
     Dosage: 250 MG, 1X/DAY
     Route: 041
     Dates: start: 20150114, end: 20150114
  9. HUMAN SERUM ALBUMIN 5 [Concomitant]
     Dosage: 250 ML, 2X/DAY
     Dates: start: 20150114, end: 20150116
  10. ATARAX-P [Suspect]
     Active Substance: HYDROXYZINE HYDROCHLORIDE
     Indication: INSOMNIA
  11. PENTAGIN [Suspect]
     Active Substance: PENTAZOCINE HYDROCHLORIDE
     Indication: SURGERY
     Dosage: 15 MG, 1X/DAY
     Route: 041
     Dates: start: 20150114, end: 20150114

REACTIONS (1)
  - Delirium [Recovered/Resolved]

NARRATIVE: CASE EVENT DATE: 20150118
